FAERS Safety Report 23754294 (Version 1)
Quarter: 2024Q2

REPORT INFORMATION
  Report Type: Spontaneous
  Country: CN (occurrence: CN)
  Receive Date: 20240418
  Receipt Date: 20240418
  Transmission Date: 20240715
  Serious: Yes (Hospitalization)
  Sender: FDA-Public Use
  Company Number: CN-HALEON-2167054

PATIENT
  Age: 19 Year
  Sex: Male
  Weight: 60 kg

DRUGS (4)
  1. IBUPROFEN [Suspect]
     Active Substance: IBUPROFEN
     Indication: Depression
     Route: 048
     Dates: start: 20240403, end: 20240403
  2. PANADOL [Suspect]
     Active Substance: ACETAMINOPHEN
     Indication: Depression
     Route: 048
     Dates: start: 20240403, end: 20240403
  3. CEFUROXIME AXETIL [Suspect]
     Active Substance: CEFUROXIME AXETIL
     Indication: Depression
     Route: 048
     Dates: start: 20240403, end: 20240403
  4. HERBALS [Suspect]
     Active Substance: HERBALS
     Indication: Depression
     Route: 048
     Dates: start: 20240403, end: 20240403

REACTIONS (12)
  - Dizziness [Recovering/Resolving]
  - Asthenia [Recovering/Resolving]
  - Toxicity to various agents [Recovering/Resolving]
  - Discomfort [Recovering/Resolving]
  - Drug-induced liver injury [Recovering/Resolving]
  - Hepatic function abnormal [Recovering/Resolving]
  - Myocardial injury [Recovering/Resolving]
  - Abdominal discomfort [Recovering/Resolving]
  - Blood lactate dehydrogenase increased [Recovering/Resolving]
  - Flushing [Recovering/Resolving]
  - Blood creatine phosphokinase increased [Recovering/Resolving]
  - Myoglobin blood increased [Recovering/Resolving]

NARRATIVE: CASE EVENT DATE: 20240403
